FAERS Safety Report 21926157 (Version 1)
Quarter: 2023Q1

REPORT INFORMATION
  Report Type: Spontaneous
  Country: NL (occurrence: NL)
  Receive Date: 20230130
  Receipt Date: 20230130
  Transmission Date: 20230418
  Serious: Yes (Other)
  Sender: FDA-Public Use
  Company Number: None

PATIENT
  Sex: Female
  Weight: 75 kg

DRUGS (3)
  1. ATORVASTATIN [Suspect]
     Active Substance: ATORVASTATIN
     Indication: Hypercholesterolaemia
     Dosage: 10 MILLIGRAM, QD,  1 X PER DAY
     Route: 065
     Dates: start: 20221207, end: 20221221
  2. CHLORTHALIDONE [Concomitant]
     Active Substance: CHLORTHALIDONE
     Dosage: 12.5MILLIGRAM, FILM-COATED TABLET, 50MG(MILLIGRAM
     Route: 065
  3. LOSARTAN [Concomitant]
     Active Substance: LOSARTAN
     Dosage: 50 MILLIGRAM, FILM-COATED TABLET, 50MG (MILLIGRAM)
     Route: 065

REACTIONS (1)
  - Diverticulitis [Recovering/Resolving]
